FAERS Safety Report 8221519-1 (Version None)
Quarter: 2012Q1

REPORT INFORMATION
  Report Type: 
  Country: None (occurrence: None)
  Receive Date: 20120316
  Receipt Date: 20120302
  Transmission Date: 20120608
  Serious: Yes (Other)
  Sender: FDA-Public Use
  Company Number: JPI-P-019983

PATIENT
  Age: 50 Year
  Sex: Female
  Weight: 110.2241 kg

DRUGS (13)
  1. CITALOPRAM HYDROBROMIDE [Concomitant]
  2. ZONISAMIDE [Concomitant]
  3. METFORMIN HCL [Concomitant]
  4. LIOTHYRONINE SODIUM [Concomitant]
  5. GLATIRAMER ACETATE [Concomitant]
  6. LISDEXAMFETAMINE DIMESYLATE [Concomitant]
  7. ESTRADIOL [Concomitant]
  8. XYREM [Suspect]
     Indication: NARCOLEPSY
     Dosage: 6 GM (3 GM,2 IN 1 D),ORAL ; 7.5 GM (3.75 GM,2 IN 1 D),ORAL ; (7 GM / NIGHT), ORAL
     Route: 048
     Dates: start: 20110311, end: 20110417
  9. XYREM [Suspect]
     Indication: NARCOLEPSY
     Dosage: 6 GM (3 GM,2 IN 1 D),ORAL ; 7.5 GM (3.75 GM,2 IN 1 D),ORAL ; (7 GM / NIGHT), ORAL
     Route: 048
     Dates: start: 20111001
  10. XYREM [Suspect]
     Indication: NARCOLEPSY
     Dosage: 6 GM (3 GM,2 IN 1 D),ORAL ; 7.5 GM (3.75 GM,2 IN 1 D),ORAL ; (7 GM / NIGHT), ORAL
     Route: 048
     Dates: start: 20110418
  11. LEVOTHYROXINE SODIUM [Concomitant]
  12. HYDOCODONE W/ACETAMINOPHEN [Concomitant]
  13. ACYCLOVIR [Concomitant]

REACTIONS (6)
  - MOANING [None]
  - WEIGHT INCREASED [None]
  - CRYING [None]
  - MUSCLE SPASTICITY [None]
  - DYSPNOEA [None]
  - BLOOD THYROID STIMULATING HORMONE INCREASED [None]
